FAERS Safety Report 24025803 (Version 1)
Quarter: 2024Q2

REPORT INFORMATION
  Report Type: Report from Study
  Country: CN (occurrence: CN)
  Receive Date: 20240628
  Receipt Date: 20240628
  Transmission Date: 20240715
  Serious: Yes (Other)
  Sender: FDA-Public Use
  Company Number: CN-JNJFOC-20240660672

PATIENT

DRUGS (4)
  1. BEDAQUILINE [Suspect]
     Active Substance: BEDAQUILINE
     Indication: Tuberculosis
     Route: 048
  2. LINEZOLID [Suspect]
     Active Substance: LINEZOLID
     Indication: Tuberculosis
     Route: 065
  3. CYCLOSERINE [Suspect]
     Active Substance: CYCLOSERINE
     Indication: Tuberculosis
     Route: 065
  4. ISONIAZID [Suspect]
     Active Substance: ISONIAZID
     Indication: Tuberculosis
     Route: 065

REACTIONS (13)
  - Neuropathy peripheral [Unknown]
  - Hypoaesthesia [Unknown]
  - Tremor [Unknown]
  - Respiratory disorder [Unknown]
  - Mental disorder [Unknown]
  - Cardiovascular disorder [Unknown]
  - Eye disorder [Unknown]
  - Skin disorder [Unknown]
  - Metabolic disorder [Unknown]
  - Gastrointestinal disorder [Unknown]
  - Bone disorder [Unknown]
  - Blood disorder [Unknown]
  - Nervous system disorder [Unknown]
